FAERS Safety Report 18806172 (Version 2)
Quarter: 2021Q1

REPORT INFORMATION
  Report Type: Spontaneous
  Country: JP (occurrence: JP)
  Receive Date: 20210129
  Receipt Date: 20210309
  Transmission Date: 20210419
  Serious: Yes (Death)
  Sender: FDA-Public Use
  Company Number: JP-BAXTER-2021BAX001741

PATIENT
  Age: 77 Year
  Sex: Female
  Weight: 56.8 kg

DRUGS (50)
  1. BLEOMYCIN [Suspect]
     Active Substance: BLEOMYCIN SULFATE
     Indication: LYMPHOMA
     Dosage: 1ST?4TH COURSE OF ABVD CHEMOTHERAPY
     Route: 041
     Dates: start: 20200609
  2. BLEOMYCIN [Suspect]
     Active Substance: BLEOMYCIN SULFATE
     Dosage: 5TH COURSE OF ABVD CHEMOTHERAPY; 14 MILLIGRAM, QD?LAST DOSE PRIOR TO AE
     Route: 041
     Dates: start: 20201023, end: 20201023
  3. DACARBAZINE. [Suspect]
     Active Substance: DACARBAZINE
     Indication: LYMPHOMA
     Dosage: 1ST?4TH COURSE OF ABVD CHEMOTHERAPY
     Route: 065
     Dates: start: 20200609
  4. SOLU?CORTEF [Concomitant]
     Active Substance: HYDROCORTISONE SODIUM SUCCINATE
     Indication: PRODUCT USED FOR UNKNOWN INDICATION
     Dosage: 100 MILLIGRAM, QD
     Route: 065
     Dates: start: 20201023, end: 20201023
  5. SOLITA?T NO.1 [Concomitant]
     Indication: PRODUCT USED FOR UNKNOWN INDICATION
     Dosage: 500 MILLILITER, QD
     Route: 065
     Dates: start: 20201111, end: 20201116
  6. TAKEPRON [Concomitant]
     Active Substance: LANSOPRAZOLE
     Indication: PRODUCT USED FOR UNKNOWN INDICATION
     Dosage: 30MILLIGRAM, BID
     Route: 065
     Dates: start: 20201111, end: 20201116
  7. APREPITANT. [Concomitant]
     Active Substance: APREPITANT
     Indication: PRODUCT USED FOR UNKNOWN INDICATION
     Dosage: 125 MILLIGRAM, QD
     Route: 065
     Dates: start: 20201023, end: 20201023
  8. APREPITANT. [Concomitant]
     Active Substance: APREPITANT
     Dosage: 80 MILLIGRAM, QD
     Route: 065
     Dates: start: 20201024, end: 20201025
  9. ASTOMIN [Concomitant]
     Indication: PRODUCT USED FOR UNKNOWN INDICATION
     Dosage: 10 MG/ WHEN U HAVE A COUGH
     Route: 065
     Dates: start: 20201107, end: 20201107
  10. SEISHOKU [Concomitant]
     Active Substance: SODIUM CHLORIDE
     Dosage: 100 MILLILITER, QD
     Route: 065
     Dates: start: 20201111, end: 20201113
  11. SEISHOKU [Concomitant]
     Active Substance: SODIUM CHLORIDE
     Dosage: 100 MILLILITER, BID
     Route: 065
     Dates: start: 20201106, end: 20201116
  12. MORPHINE HYDROCHLORIDE HYDRATE [Concomitant]
     Active Substance: MORPHINE HYDROCHLORIDE
     Dosage: 30 MILLIGRAM, QD
     Route: 065
     Dates: start: 20201115, end: 20201116
  13. DACARBAZINE. [Suspect]
     Active Substance: DACARBAZINE
     Dosage: 5TH COURSE OF ABVD CHEMOTHERAPY; 540 MILLIGRAM, QD
     Route: 065
     Dates: start: 20201023, end: 20201023
  14. SEISHOKU [Concomitant]
     Active Substance: SODIUM CHLORIDE
     Dosage: 50 MILLILITER, BID
     Route: 065
     Dates: start: 20201115, end: 20201115
  15. LANSOPRAZOLE OD [Concomitant]
     Active Substance: LANSOPRAZOLE
     Indication: PRODUCT USED FOR UNKNOWN INDICATION
     Dosage: DOSAGE FORM: TABLET, 15 MILLIGRAM, QD
     Route: 065
     Dates: start: 20201023, end: 20201115
  16. LUNESTA [Concomitant]
     Active Substance: ESZOPICLONE
     Dosage: DOSAGE FORM: TABLET; 1 MILLIGRAM, QD
     Route: 065
     Dates: start: 20201109, end: 20201115
  17. ACETAMINOPHEN. [Concomitant]
     Active Substance: ACETAMINOPHEN
     Dosage: DOSAGE FORM: TABLET, 400 MG/ WHEN U HAVE A FEVER
     Route: 065
     Dates: start: 20201108, end: 20201108
  18. SEISHOKU [Concomitant]
     Active Substance: SODIUM CHLORIDE
     Dosage: 100 MILLILITER, BID
     Route: 065
     Dates: start: 20201106, end: 20201116
  19. NORADRENALINE [Concomitant]
     Active Substance: NOREPINEPHRINE
     Indication: PRODUCT USED FOR UNKNOWN INDICATION
     Dosage: 3 MILLIGRAM, BID
     Route: 065
     Dates: start: 20201115, end: 20201116
  20. FLUCONAZOLE. [Concomitant]
     Active Substance: FLUCONAZOLE
     Indication: PRODUCT USED FOR UNKNOWN INDICATION
     Dosage: 100 MILLIGRAM, QD
     Route: 065
     Dates: start: 20201023, end: 20201115
  21. CARERAM [Concomitant]
     Active Substance: IGURATIMOD
     Indication: PRODUCT USED FOR UNKNOWN INDICATION
     Dosage: DOSAGE FORM: TABLET; 25 MILLIGRAM, QD
     Route: 065
     Dates: start: 20201023, end: 20201115
  22. ACETAMINOPHEN. [Concomitant]
     Active Substance: ACETAMINOPHEN
     Dosage: DOSAGE FORM: TABLET, 400 MG/ WHEN U HAVE A FEVER
     Route: 065
     Dates: start: 20201110, end: 20201110
  23. EXAL [VINBLASTINE SULFATE] [Suspect]
     Active Substance: VINBLASTINE SULFATE
     Dosage: 5TH COURSE OF ABVD CHEMOTHERAPY; 8.5 MILLIGRAM, QD
     Route: 065
     Dates: start: 20201023, end: 20201023
  24. SEISHOKU [Concomitant]
     Active Substance: SODIUM CHLORIDE
     Indication: PRODUCT USED FOR UNKNOWN INDICATION
     Dosage: 50 MILLILITER, QD
     Route: 065
     Dates: start: 20201023, end: 20201023
  25. DISTILLED WATER [Concomitant]
     Indication: PRODUCT USED FOR UNKNOWN INDICATION
     Dosage: 100 MILLILITER, QD
     Route: 065
     Dates: start: 20201023, end: 20201023
  26. LUNESTA [Concomitant]
     Active Substance: ESZOPICLONE
     Indication: PRODUCT USED FOR UNKNOWN INDICATION
     Dosage: 1MG/ WHEN U HAVE TROUBLE OF SLEEPING
     Route: 065
     Dates: start: 20201106, end: 20201108
  27. BILANOA [Concomitant]
     Active Substance: BILASTINE
     Indication: PRODUCT USED FOR UNKNOWN INDICATION
     Dosage: DOSAGE FORM: TABLET; 20 MILLIGRAM, QD
     Route: 065
     Dates: start: 20201110, end: 20201115
  28. DOXORUBICIN HYDROCHLORIDE. [Suspect]
     Active Substance: DOXORUBICIN HYDROCHLORIDE
     Dosage: 5TH COURSE OF ABVD CHEMOTHERAPY; 36 MILLIGRAM, QD
     Route: 065
     Dates: start: 20201023, end: 20201023
  29. EXAL [VINBLASTINE SULFATE] [Suspect]
     Active Substance: VINBLASTINE SULFATE
     Indication: LYMPHOMA
     Dosage: 1ST?4TH COURSE OF ABVD CHEMOTHERAPY
     Route: 065
     Dates: start: 20200609
  30. SOLITA?T NO 3 [Concomitant]
     Indication: PRODUCT USED FOR UNKNOWN INDICATION
     Dosage: 500 MILLILITER, QD
     Route: 065
     Dates: start: 20201106, end: 20201109
  31. SEISHOKU [Concomitant]
     Active Substance: SODIUM CHLORIDE
     Dosage: 100 MILLILITER, QD
     Route: 065
     Dates: start: 20201023, end: 20201023
  32. METOCLOPRAMIDE. [Concomitant]
     Active Substance: METOCLOPRAMIDE
     Indication: PRODUCT USED FOR UNKNOWN INDICATION
     Dosage: 10 MILLIGRAM, QD
     Route: 065
     Dates: start: 20201109, end: 20201109
  33. MAGMITT [Concomitant]
     Active Substance: MAGNESIUM OXIDE
     Indication: PRODUCT USED FOR UNKNOWN INDICATION
     Dosage: DOSAGE FORM: TABLET; 1320 MILLIGRAM, BID
     Route: 065
     Dates: start: 20201023, end: 20201115
  34. DOXORUBICIN HYDROCHLORIDE. [Suspect]
     Active Substance: DOXORUBICIN HYDROCHLORIDE
     Indication: LYMPHOMA
     Dosage: 1ST ?4TH  COURSE OF ABVD CHEMOTHERAPY
     Route: 065
  35. SEISHOKU [Concomitant]
     Active Substance: SODIUM CHLORIDE
     Dosage: 20 MILLILITER, BID
     Route: 065
     Dates: start: 20201111, end: 20201116
  36. G?LASTA [Concomitant]
     Active Substance: PEGFILGRASTIM
     Indication: PRODUCT USED FOR UNKNOWN INDICATION
     Dosage: 3.6 MILLIGRAM, QD
     Route: 065
     Dates: start: 20201024, end: 20201024
  37. MORPHINE HYDROCHLORIDE HYDRATE [Concomitant]
     Active Substance: MORPHINE HYDROCHLORIDE
     Indication: PRODUCT USED FOR UNKNOWN INDICATION
     Dosage: 10 MILLIGRAM, QD
     Route: 065
     Dates: start: 20201115, end: 20201115
  38. ELNEOPA NF NO.1 [Concomitant]
     Indication: PRODUCT USED FOR UNKNOWN INDICATION
     Dosage: 1000 MILLILITER, QD
     Route: 065
     Dates: start: 20201116, end: 20201116
  39. BACTRAMIN [Concomitant]
     Active Substance: SULFAMETHOXAZOLE\TRIMETHOPRIM
     Indication: PRODUCT USED FOR UNKNOWN INDICATION
     Dosage: DOSAGE FORM: TABLET; 1 DOSAGE FORM, QD
     Route: 065
     Dates: start: 20201023, end: 20201115
  40. ACETAMINOPHEN. [Concomitant]
     Active Substance: ACETAMINOPHEN
     Indication: PRODUCT USED FOR UNKNOWN INDICATION
     Dosage: DOSAGE FORM: TABLET, 400 MG/ WHEN U HAVE A FEVER
     Route: 065
     Dates: start: 20201107, end: 20201107
  41. ACETAMINOPHEN. [Concomitant]
     Active Substance: ACETAMINOPHEN
     Dosage: DOSAGE FORM: TABLET, 400 MG/ WHEN U HAVE A FEVER
     Route: 065
     Dates: start: 20201111, end: 20201111
  42. FEXOFENADINE HYDROCHLORIDE. [Concomitant]
     Active Substance: FEXOFENADINE HYDROCHLORIDE
     Indication: PRODUCT USED FOR UNKNOWN INDICATION
     Dosage: DOSAGE FORM: TABLET, 120 MILLIGRAM, BID
     Route: 065
     Dates: start: 20201106, end: 20201109
  43. ALOXI [Concomitant]
     Active Substance: PALONOSETRON HYDROCHLORIDE
     Indication: PRODUCT USED FOR UNKNOWN INDICATION
     Dosage: 0.75 MILLIGRAM, QD
     Route: 065
     Dates: start: 20201023, end: 20201023
  44. SEISHOKU [Concomitant]
     Active Substance: SODIUM CHLORIDE
     Dosage: 50 MILLILITER, QD
     Route: 065
     Dates: start: 20201023, end: 20201023
  45. SEISHOKU [Concomitant]
     Active Substance: SODIUM CHLORIDE
     Dosage: 50 MILLILITER, QD
     Route: 065
     Dates: start: 20201023, end: 20201023
  46. SEISHOKU [Concomitant]
     Active Substance: SODIUM CHLORIDE
     Dosage: 100 MILLILITER, QD
     Route: 065
     Dates: start: 20201114, end: 20201116
  47. SEISHOKU [Concomitant]
     Active Substance: SODIUM CHLORIDE
     Dosage: 47 MILLILITER, BID
     Route: 065
     Dates: start: 20201115, end: 20201116
  48. SEISHOKU [Concomitant]
     Active Substance: SODIUM CHLORIDE
     Dosage: 47 MILLILITER, QD
     Route: 065
     Dates: start: 20201115, end: 20201116
  49. VALACICLOVIR [Concomitant]
     Active Substance: VALACYCLOVIR HYDROCHLORIDE
     Indication: PRODUCT USED FOR UNKNOWN INDICATION
     Dosage: DOSAGE FORM: TABLET, 500 MILLIGRAM, QD
     Route: 065
     Dates: start: 20201023, end: 20201115
  50. PANTETHINE [Concomitant]
     Active Substance: PANTETHINE
     Indication: PRODUCT USED FOR UNKNOWN INDICATION
     Dosage: DOSAGE FORM: TABLET; 400 MILLIGRAM, BID
     Route: 065
     Dates: start: 20201023, end: 20201115

REACTIONS (1)
  - Interstitial lung disease [Fatal]

NARRATIVE: CASE EVENT DATE: 20201106
